FAERS Safety Report 8419072-2 (Version None)
Quarter: 2012Q2

REPORT INFORMATION
  Report Type: 
  Country: None (occurrence: None)
  Receive Date: 20120530
  Receipt Date: 20120516
  Transmission Date: 20120825
  Serious: Yes (Hospitalization)
  Sender: FDA-Public Use
  Company Number: AUR-APL-2012-02274

PATIENT
  Age: 75 Year
  Sex: Male

DRUGS (7)
  1. SIMVASTATIN [Concomitant]
  2. OMEPRAZOLE [Concomitant]
  3. WARFARIN SODIUM [Concomitant]
  4. ALFUZOSIN (ALFUZOSIN) [Concomitant]
  5. FINASTERIDE [Concomitant]
  6. METFFORMIN HYDROCHLORIDE [Concomitant]
  7. NAPROXEN [Suspect]
     Indication: PAIN
     Dosage: 500 MG (250 MG, 2 IN 1 D), ORAL
     Route: 048
     Dates: start: 20120426, end: 20120428

REACTIONS (2)
  - RENAL FAILURE ACUTE [None]
  - HAEMODIALYSIS [None]
